FAERS Safety Report 14389989 (Version 1)
Quarter: 2018Q1

REPORT INFORMATION
  Report Type: Spontaneous
  Country: US (occurrence: US)
  Receive Date: 20180115
  Receipt Date: 20180115
  Transmission Date: 20180509
  Serious: No
  Sender: FDA-Public Use
  Company Number: US-BIOGEN-2017BI00368393

PATIENT
  Age: 50 Year
  Sex: Female

DRUGS (1)
  1. ZINBRYTA [Suspect]
     Active Substance: DACLIZUMAB
     Indication: MULTIPLE SCLEROSIS
     Route: 058
     Dates: start: 20170126

REACTIONS (13)
  - Pain [Unknown]
  - Visual impairment [Unknown]
  - Cognitive disorder [Unknown]
  - Fatigue [Unknown]
  - Hypersomnia [Unknown]
  - Vessel puncture site swelling [Unknown]
  - Fall [Unknown]
  - Motor dysfunction [Unknown]
  - Balance disorder [Unknown]
  - Bone lesion [Unknown]
  - Contusion [Unknown]
  - Restless legs syndrome [Unknown]
  - Skin infection [Unknown]

NARRATIVE: CASE EVENT DATE: 20170127
